FAERS Safety Report 7214545-2 (Version None)
Quarter: 2011Q1

REPORT INFORMATION
  Report Type: 
  Country: None (occurrence: None)
  Receive Date: 20110107
  Receipt Date: 20101231
  Transmission Date: 20110831
  Serious: Yes (Death)
  Sender: FDA-Public Use
  Company Number: US-PFIZER INC-2011002537

PATIENT
  Age: 42 Year
  Sex: Female

DRUGS (7)
  1. VERAPAMIL HCL [Suspect]
     Route: 048
  2. AMITRIPTYLINE [Concomitant]
  3. HYDROMORPHONE [Concomitant]
  4. BUTALBITAL [Concomitant]
  5. QUETIAPINE [Suspect]
     Route: 048
  6. ETHANOL [Suspect]
     Route: 048
  7. CLONAZEPAM [Concomitant]

REACTIONS (2)
  - COMPLETED SUICIDE [None]
  - CARDIO-RESPIRATORY ARREST [None]
